FAERS Safety Report 4719867-2 (Version None)
Quarter: 2005Q3

REPORT INFORMATION
  Report Type: 
  Country: None (occurrence: None)
  Receive Date: 20050721
  Receipt Date: 20041220
  Transmission Date: 20060218
  Serious: No
  Sender: FDA-Public Use
  Company Number: US-GLAXOSMITHKLINE-A0538038A

PATIENT
  Sex: Female

DRUGS (2)
  1. AVANDIA [Suspect]
     Dosage: 2MG TWICE PER DAY
     Route: 048
  2. NO CONCURRENT MEDICATION [Concomitant]

REACTIONS (6)
  - CARDIAC FLUTTER [None]
  - DYSPNOEA [None]
  - ELECTROCARDIOGRAM ABNORMAL [None]
  - FLUID RETENTION [None]
  - FOOD CRAVING [None]
  - WEIGHT INCREASED [None]
